FAERS Safety Report 9542755 (Version 1)
Quarter: 2013Q3

REPORT INFORMATION
  Report Type: Spontaneous
  Country: US (occurrence: US)
  Receive Date: 20130923
  Receipt Date: 20130923
  Transmission Date: 20140515
  Serious: No
  Sender: FDA-Public Use
  Company Number: US-PFIZER INC-2013272642

PATIENT
  Age: 55 Year
  Sex: Female
  Weight: 63.49 kg

DRUGS (4)
  1. PRISTIQ [Suspect]
     Indication: DEPRESSION
     Dosage: 50 MG, DAILY
     Dates: end: 2013
  2. ZOLOFT [Suspect]
     Indication: DEPRESSION
     Dosage: UNK
  3. EFFEXOR XR [Suspect]
     Indication: DEPRESSION
     Dosage: UNK
  4. PAXIL [Suspect]
     Indication: DEPRESSION
     Dosage: UNK

REACTIONS (6)
  - Malaise [Unknown]
  - Emotional disorder [Unknown]
  - Nervousness [Unknown]
  - Pain [Unknown]
  - Influenza like illness [Unknown]
  - Drug ineffective [Unknown]
